FAERS Safety Report 9325724 (Version 3)
Quarter: 2014Q2

REPORT INFORMATION
  Report Type: Report from Study
  Country: US (occurrence: US)
  Receive Date: 20130604
  Receipt Date: 20140404
  Transmission Date: 20141212
  Serious: Yes (Hospitalization)
  Sender: FDA-Public Use
  Company Number: US-UCBSA-087499

PATIENT
  Age: 53 Year
  Sex: Female
  Weight: 92 kg

DRUGS (13)
  1. CIMZIA [Suspect]
     Indication: CROHN^S DISEASE
     Dates: start: 20110317, end: 20121206
  2. MESALAMINE [Concomitant]
     Indication: CROHN^S DISEASE
     Dosage: UNKNOWN DOSE
     Dates: start: 20120523
  3. PREDNISONE [Concomitant]
     Indication: CROHN^S DISEASE
     Dosage: UNKNOWN DOSE
     Dates: start: 20120314
  4. PREDNISONE [Concomitant]
     Indication: CROHN^S DISEASE
     Dates: start: 20090604, end: 201005
  5. BENTYL [Concomitant]
     Indication: CROHN^S DISEASE
     Dosage: UNKNOWN DOSE
  6. MAGNESIUM [Concomitant]
     Indication: CROHN^S DISEASE
     Dosage: UNKNOWN DOSE
  7. CALCIUM [Concomitant]
     Indication: CROHN^S DISEASE
     Dosage: UNKNOWN DOSE
  8. VITAMIN D [Concomitant]
     Indication: CROHN^S DISEASE
     Dosage: UNKNOWN DOSE
  9. MULTIVITAMIN [Concomitant]
     Indication: CROHN^S DISEASE
     Dosage: UNKNOWN DOSE
  10. PRILOSEC OTC [Concomitant]
     Indication: CROHN^S DISEASE
     Dosage: UNKNOWN DOSE
  11. SLOW MAG [Concomitant]
     Indication: HYPOMAGNESAEMIA
     Route: 048
     Dates: start: 20120312
  12. PROTONIX [Concomitant]
     Indication: DYSPEPSIA
     Route: 048
     Dates: start: 20120312
  13. DIPHENOXYLATE AND ATROPINE [Concomitant]
     Indication: CROHN^S DISEASE

REACTIONS (2)
  - Postoperative wound infection [Recovered/Resolved]
  - Pelvic abscess [Recovered/Resolved]
